FAERS Safety Report 5371344-4 (Version None)
Quarter: 2007Q2

REPORT INFORMATION
  Report Type: 
  Country: None (occurrence: None)
  Receive Date: 20070622
  Receipt Date: 20070608
  Transmission Date: 20071010
  Serious: Yes (Other)
  Sender: FDA-Public Use
  Company Number: 02100-EUR-07-0046

PATIENT
  Age: 72 Year
  Sex: Female

DRUGS (2)
  1. CILOSTAZOL [Suspect]
     Indication: PERIPHERAL ARTERIAL OCCLUSIVE DISEASE
     Dosage: ORAL
     Route: 048
     Dates: start: 20070109, end: 20070113
  2. ETORICOXIB [Concomitant]

REACTIONS (2)
  - DIARRHOEA [None]
  - INCONTINENCE [None]
